FAERS Safety Report 12978692 (Version 8)
Quarter: 2020Q2

REPORT INFORMATION
  Report Type: Spontaneous
  Country: US (occurrence: US)
  Receive Date: 20161128
  Receipt Date: 20200427
  Transmission Date: 20200713
  Serious: No
  Sender: FDA-Public Use
  Company Number: US-PFIZER INC-2016547346

PATIENT
  Age: 63 Year
  Sex: Female
  Weight: 76 kg

DRUGS (15)
  1. LYRICA [Suspect]
     Active Substance: PREGABALIN
     Indication: NEUROPATHY PERIPHERAL
  2. WP THYROID [Concomitant]
     Active Substance: THYROID, PORCINE
     Indication: HYPERTHYROIDISM
     Dosage: 113.75
     Dates: start: 2015
  3. SIMVASTATIN. [Concomitant]
     Active Substance: SIMVASTATIN
     Indication: BLOOD CHOLESTEROL INCREASED
     Dosage: 20 MG, UNK
  4. COENZYME Q10 [Concomitant]
     Active Substance: UBIDECARENONE
     Indication: MUSCLE SPASMS
     Dosage: 200 MG, 1X/DAY
  5. KRILL OIL [Concomitant]
     Active Substance: DIETARY SUPPLEMENT\KRILL OIL
     Indication: DRY EYE
     Dosage: 300 MG, 2X/DAY
  6. LYRICA [Suspect]
     Active Substance: PREGABALIN
     Indication: FIBROMYALGIA
     Dosage: 50 MG, 2X/DAY
     Route: 048
  7. NORCO [Concomitant]
     Active Substance: ACETAMINOPHEN\HYDROCODONE BITARTRATE
     Indication: NERVE COMPRESSION
     Dosage: UNK
  8. LYRICA [Suspect]
     Active Substance: PREGABALIN
     Indication: NEURALGIA
     Dosage: 75 MG, 2X/DAY (1 CAPSULE TWICE A DAY 90 DAYS)
     Route: 048
  9. LYRICA [Suspect]
     Active Substance: PREGABALIN
     Indication: SCIATICA
  10. XANAX [Concomitant]
     Active Substance: ALPRAZOLAM
     Indication: PANIC ATTACK
     Dosage: 1 MG, UNK
  11. LYRICA [Suspect]
     Active Substance: PREGABALIN
     Indication: PAIN
  12. NORCO [Concomitant]
     Active Substance: ACETAMINOPHEN\HYDROCODONE BITARTRATE
     Indication: PAIN
  13. SIMVASTATIN. [Concomitant]
     Active Substance: SIMVASTATIN
     Indication: MUSCLE SPASMS
  14. BENYLIN [Concomitant]
     Active Substance: DIPHENHYDRAMINE HYDROCHLORIDE
     Indication: EMPHYSEMA
     Dosage: UNK, AS NEEDED
     Dates: start: 1997
  15. SPIRIVA [Concomitant]
     Active Substance: TIOTROPIUM BROMIDE MONOHYDRATE
     Indication: EMPHYSEMA
     Dosage: UNK, 1X/DAY
     Dates: start: 1999

REACTIONS (1)
  - Drug ineffective [Unknown]
